FAERS Safety Report 16915919 (Version 1)
Quarter: 2019Q4

REPORT INFORMATION
  Report Type: Spontaneous
  Country: GB (occurrence: GB)
  Receive Date: 20191014
  Receipt Date: 20191014
  Transmission Date: 20200122
  Serious: Yes (Other)
  Sender: FDA-Public Use
  Company Number: GB-MYLANLABS-2019M1096297

PATIENT
  Age: 38 Year
  Sex: Female
  Weight: 81.64 kg

DRUGS (8)
  1. ERYTHROMYCIN. [Concomitant]
     Active Substance: ERYTHROMYCIN
  2. CLINDAMYCIN. [Concomitant]
     Active Substance: CLINDAMYCIN
  3. PARACETAMOL [Concomitant]
     Active Substance: ACETAMINOPHEN
  4. LYMECYCLINE [Concomitant]
     Active Substance: LYMECYCLINE
     Dosage: UNK
  5. METRONIDAZOLE. [Concomitant]
     Active Substance: METRONIDAZOLE
  6. RANITIDINE. [Concomitant]
     Active Substance: RANITIDINE
  7. CIPROFLOXACIN. [Suspect]
     Active Substance: CIPROFLOXACIN
     Indication: DIVERTICULITIS
     Route: 048
     Dates: start: 20190528, end: 20190604
  8. CEFALEXIN [Concomitant]
     Active Substance: CEPHALEXIN

REACTIONS (6)
  - Tremor [Recovered/Resolved]
  - Delirium [Unknown]
  - Nausea [Unknown]
  - Malaise [Recovered/Resolved]
  - Hallucination [Recovered/Resolved]
  - Abnormal behaviour [Recovered/Resolved]

NARRATIVE: CASE EVENT DATE: 20190528
